FAERS Safety Report 10533809 (Version 1)
Quarter: 2014Q4

REPORT INFORMATION
  Report Type: Spontaneous
  Country: FR (occurrence: None)
  Receive Date: 20141020
  Receipt Date: 20141020
  Transmission Date: 20150529
  Serious: Yes (Life-Threatening, Hospitalization)
  Sender: FDA-Public Use
  Company Number: FR-017334

PATIENT
  Age: 51 Year
  Sex: Male

DRUGS (6)
  1. IMOVANE [Concomitant]
     Active Substance: ZOPICLONE
  2. MINIRIN [Suspect]
     Active Substance: DESMOPRESSIN ACETATE
     Indication: DIABETES INSIPIDUS
     Route: 045
  3. CLOPIXOL [Concomitant]
     Active Substance: ZUCLOPENTHIXOL ACETATE
  4. TRANXENE T-TAB [Concomitant]
     Active Substance: CLORAZEPATE DIPOTASSIUM
  5. TEGRETOL [Suspect]
     Active Substance: CARBAMAZEPINE
     Indication: SCHIZOPHRENIA
     Route: 048
  6. SULFARLEM [Concomitant]
     Active Substance: ANETHOLTRITHION

REACTIONS (6)
  - Lung disorder [None]
  - Hyponatraemia [None]
  - Brain oedema [None]
  - Cerebrovascular accident [None]
  - Coma [None]
  - Septic shock [None]

NARRATIVE: CASE EVENT DATE: 20140628
